FAERS Safety Report 6401093-2 (Version None)
Quarter: 2009Q4

REPORT INFORMATION
  Report Type: 
  Country: None (occurrence: None)
  Receive Date: 20091015
  Receipt Date: 20090307
  Transmission Date: 20100525
  Serious: Yes (Disabling)
  Sender: FDA-Public Use
  Company Number: US-ASTRAZENECA-2006UW10929

PATIENT
  Sex: Male
  Weight: 108.9 kg

DRUGS (22)
  1. SEROQUEL [Suspect]
     Indication: DEPRESSION
     Dosage: 25 MG TO 100 MG
     Route: 048
     Dates: start: 20020707
  2. SEROQUEL [Suspect]
     Indication: ANXIETY
     Dosage: 25 MG TO 100 MG
     Route: 048
     Dates: start: 20020707
  3. SEROQUEL [Suspect]
     Indication: MOOD SWINGS
     Dosage: 25 MG TO 100 MG
     Route: 048
     Dates: start: 20020707
  4. ZYPREXA [Suspect]
  5. REMERON [Concomitant]
  6. ADVAIR DISKUS 100/50 [Concomitant]
  7. FLONASE [Concomitant]
  8. WELLBUTRIN [Concomitant]
  9. GLYBURIDE [Concomitant]
  10. LISINOPRIL [Concomitant]
  11. PIOGLITAZONE [Concomitant]
  12. ATENOLOL [Concomitant]
  13. XANAX [Concomitant]
  14. VISTARIL [Concomitant]
  15. SERTRALINE HYDROCHLORIDE [Concomitant]
  16. NEURONTIN [Concomitant]
  17. TEGRETOL [Concomitant]
  18. HYDROCODONE [Concomitant]
  19. RANITIDINE [Concomitant]
  20. SINGULAIR [Concomitant]
  21. PREVACID [Concomitant]
  22. NEXIUM [Concomitant]

REACTIONS (1)
  - ILL-DEFINED DISORDER [None]
